FAERS Safety Report 5488201-5 (Version None)
Quarter: 2007Q3

REPORT INFORMATION
  Report Type: 
  Country: None (occurrence: None)
  Receive Date: 20070926
  Receipt Date: 20070818
  Transmission Date: 20080115
  Serious: Yes (Other)
  Sender: FDA-Public Use
  Company Number: HQWYE751222AUG07

PATIENT
  Sex: 0

DRUGS (1)
  1. TORISEL [Suspect]
     Indication: RENAL CELL CARCINOMA STAGE UNSPECIFIED
     Dosage: 25  MG 1 X PER 1 DAY, INTRAVENOUS
     Route: 042
     Dates: start: 20070816, end: 20070816

REACTIONS (2)
  - CHEST PAIN [None]
  - FLUSHING [None]
